FAERS Safety Report 5430069-7 (Version None)
Quarter: 2007Q3

REPORT INFORMATION
  Report Type: 
  Country: None (occurrence: None)
  Receive Date: 20070829
  Receipt Date: 20070820
  Transmission Date: 20080115
  Serious: Yes (Other)
  Sender: FDA-Public Use
  Company Number: AU-PFIZER INC-2007069608

PATIENT
  Age: 35 Year
  Sex: Female

DRUGS (2)
  1. ZELDOX (CAPSULES) [Suspect]
     Indication: SCHIZOPHRENIA
     Route: 048
  2. RISPERDAL [Concomitant]

REACTIONS (1)
  - BLOOD PRESSURE DECREASED [None]
